FAERS Safety Report 15472604 (Version 2)
Quarter: 2018Q4

REPORT INFORMATION
  Report Type: Report from Study
  Country: GB (occurrence: GB)
  Receive Date: 20181008
  Receipt Date: 20181210
  Transmission Date: 20190205
  Serious: Yes (Hospitalization, Other)
  Sender: FDA-Public Use
  Company Number: GB-BRISTOL-MYERS SQUIBB COMPANY-BMS-2018-014733

PATIENT
  Sex: Female

DRUGS (2)
  1. PREDNISOLONE. [Concomitant]
     Active Substance: PREDNISOLONE
     Indication: PRODUCT USED FOR UNKNOWN INDICATION
     Route: 065
  2. ABATACEPT [Suspect]
     Active Substance: ABATACEPT
     Indication: RHEUMATOID ARTHRITIS
     Dosage: 125 MG, QWK
     Route: 058
     Dates: start: 201712

REACTIONS (10)
  - Musculoskeletal pain [Unknown]
  - Weight decreased [Recovering/Resolving]
  - Rheumatoid arthritis [Recovering/Resolving]
  - Musculoskeletal stiffness [Recovering/Resolving]
  - Malaise [Recovering/Resolving]
  - Hordeolum [Unknown]
  - Somnolence [Unknown]
  - Rectal adenocarcinoma [Unknown]
  - Drug ineffective [Unknown]
  - Arthralgia [Unknown]
